FAERS Safety Report 16243928 (Version 1)
Quarter: 2019Q2

REPORT INFORMATION
  Report Type: Spontaneous
  Country: US (occurrence: US)
  Receive Date: 20190322
  Receipt Date: 20190322
  Transmission Date: 20190711
  Serious: No
  Sender: FDA-Public Use
  Company Number: None

PATIENT

DRUGS (1)
  1. HUMATROPE [Suspect]
     Active Substance: SOMATROPIN
     Indication: TYPE 2 DIABETES MELLITUS
     Route: 058
     Dates: start: 201612

REACTIONS (2)
  - Gingival disorder [None]
  - Tooth loss [None]

NARRATIVE: CASE EVENT DATE: 201903
